FAERS Safety Report 16949988 (Version 4)
Quarter: 2020Q1

REPORT INFORMATION
  Report Type: Spontaneous
  Country: GR (occurrence: GR)
  Receive Date: 20191023
  Receipt Date: 20200214
  Transmission Date: 20200409
  Serious: Yes (Hospitalization, Other)
  Sender: FDA-Public Use
  Company Number: NVSC2019GR012311

PATIENT
  Sex: Female

DRUGS (1)
  1. GILENYA [Suspect]
     Active Substance: FINGOLIMOD HYDROCHLORIDE
     Indication: RELAPSING-REMITTING MULTIPLE SCLEROSIS
     Dosage: UNK
     Route: 065
     Dates: end: 20191015

REACTIONS (11)
  - Eye movement disorder [Not Recovered/Not Resolved]
  - Progressive multifocal leukoencephalopathy [Not Recovered/Not Resolved]
  - Urinary retention [Not Recovered/Not Resolved]
  - Brain stem auditory evoked response abnormal [Unknown]
  - Gait disturbance [Not Recovered/Not Resolved]
  - Hemiparesis [Unknown]
  - Dysphagia [Not Recovered/Not Resolved]
  - Personality change [Unknown]
  - Dysarthria [Unknown]
  - Aphasia [Unknown]
  - Eye disorder [Unknown]
